FAERS Safety Report 19265614 (Version 7)
Quarter: 2021Q4

REPORT INFORMATION
  Report Type: Spontaneous
  Country: FR (occurrence: FR)
  Receive Date: 20210517
  Receipt Date: 20211214
  Transmission Date: 20220303
  Serious: Yes (Life-Threatening, Hospitalization, Other)
  Sender: FDA-Public Use
  Company Number: FR-GILEAD-2021-0519874

PATIENT
  Age: 44 Year
  Sex: Male
  Weight: 79 kg

DRUGS (5)
  1. YESCARTA [Suspect]
     Active Substance: AXICABTAGENE CILOLEUCEL
     Indication: Diffuse large B-cell lymphoma
     Dosage: UNK
     Route: 042
     Dates: start: 20210427, end: 20210427
  2. VALACYCLOVIR HYDROCHLORIDE [Concomitant]
     Active Substance: VALACYCLOVIR HYDROCHLORIDE
     Indication: Prophylaxis
     Dosage: 500 MG, BID
     Route: 065
     Dates: start: 202006
  3. VALACYCLOVIR HYDROCHLORIDE [Concomitant]
     Active Substance: VALACYCLOVIR HYDROCHLORIDE
     Dosage: 500 X2
     Dates: start: 20210421
  4. ATOVAQUONE [Concomitant]
     Active Substance: ATOVAQUONE
     Indication: Prophylaxis
     Dosage: 750 MG, BID
     Route: 065
     Dates: start: 202006
  5. ATOVAQUONE [Concomitant]
     Active Substance: ATOVAQUONE
     Dosage: 750 X2
     Dates: start: 20210421

REACTIONS (15)
  - Status epilepticus [Recovered/Resolved]
  - Hepatic cytolysis [Recovered/Resolved]
  - Hyperthermia [Recovered/Resolved]
  - Pneumocystis jirovecii infection [Not Recovered/Not Resolved]
  - Cytokine release syndrome [Recovered/Resolved]
  - General physical health deterioration [Recovered/Resolved]
  - Disturbance in attention [Recovered/Resolved]
  - Dysgraphia [Recovered/Resolved]
  - Disturbance in attention [Recovered/Resolved]
  - Blood creatinine increased [Recovered/Resolved]
  - Immune effector cell-associated neurotoxicity syndrome [Recovered/Resolved]
  - Alanine aminotransferase increased [Recovered/Resolved]
  - Hypogammaglobulinaemia [Unknown]
  - Cytopenia [Recovered/Resolved]
  - Bronchitis [Recovering/Resolving]

NARRATIVE: CASE EVENT DATE: 20210501
